FAERS Safety Report 9871259 (Version 5)
Quarter: 2014Q3

REPORT INFORMATION
  Report Type: Spontaneous
  Country: US (occurrence: US)
  Receive Date: 20140205
  Receipt Date: 20140807
  Transmission Date: 20150326
  Serious: No
  Sender: FDA-Public Use
  Company Number: US-009507513-1202USA00433

PATIENT
  Sex: Male
  Weight: 104.54 kg

DRUGS (6)
  1. FINASTERIDE. [Suspect]
     Active Substance: FINASTERIDE
     Indication: ALOPECIA
     Dosage: 1 MG, UNK
     Route: 048
     Dates: start: 20090219, end: 20091009
  2. PROPECIA [Suspect]
     Active Substance: FINASTERIDE
     Indication: KELOID SCAR
  3. PROSCAR [Suspect]
     Active Substance: FINASTERIDE
     Indication: ALOPECIA
     Dosage: 5 MG, UNK
     Route: 048
     Dates: start: 20090219, end: 20091009
  4. PROSCAR [Suspect]
     Active Substance: FINASTERIDE
     Indication: KELOID SCAR
  5. FINASTERIDE. [Suspect]
     Active Substance: FINASTERIDE
     Indication: KELOID SCAR
     Dosage: 5 MG, 1/5 TAB (1MG) QD
     Route: 048
     Dates: start: 20090219
  6. PROPECIA [Suspect]
     Active Substance: FINASTERIDE
     Indication: ALOPECIA
     Dosage: 1 MG, UNK
     Route: 048
     Dates: start: 20090219, end: 20091009

REACTIONS (7)
  - Acne pustular [Unknown]
  - Sexual dysfunction [Not Recovered/Not Resolved]
  - Erectile dysfunction [Unknown]
  - Cognitive disorder [Not Recovered/Not Resolved]
  - Wrong technique in drug usage process [Unknown]
  - Intentional product misuse [Unknown]
  - Insomnia [Unknown]

NARRATIVE: CASE EVENT DATE: 20090219
